FAERS Safety Report 9694136 (Version 1)
Quarter: 2013Q4

REPORT INFORMATION
  Report Type: Report from Study
  Country: US (occurrence: US)
  Receive Date: 20131118
  Receipt Date: 20131118
  Transmission Date: 20140711
  Serious: Yes (Hospitalization)
  Sender: FDA-Public Use
  Company Number: US-ROCHE-1294874

PATIENT
  Age: 54 Year
  Sex: Female

DRUGS (23)
  1. HERCEPTIN [Suspect]
     Indication: HER-2 POSITIVE BREAST CANCER
     Dosage: 6 CYCLES: C1 AT 4 MG/KG EVERY TWO WEEKS.
     Route: 065
     Dates: start: 20030102, end: 20031229
  2. HERCEPTIN [Suspect]
     Dosage: TRASTUZUMAB 6 MG/KG EVERY 3 WEEKS. SHE RECEIVED CYCLE 1, ON 08/MAY/2003, CYCLE 3 ON 19/JUN/2003, CYC
     Route: 065
     Dates: start: 20030508, end: 20040102
  3. XELODA [Suspect]
     Indication: HER-2 POSITIVE BREAST CANCER
     Dosage: 1500 MG DAYS 1-7; 2500 MG DAYS 8-14
     Route: 048
     Dates: start: 20060220, end: 20060717
  4. XELODA [Suspect]
     Route: 048
     Dates: start: 2006, end: 20060717
  5. XELODA [Suspect]
     Dosage: 7 DAYS ON + 7 DAYS OFF DRUG
     Route: 048
     Dates: start: 201007
  6. XELODA [Suspect]
     Dosage: 7 DAYS ON + 7 DAYS OFF DRUG
     Route: 048
     Dates: start: 20121105
  7. AVASTIN [Suspect]
     Indication: HER-2 POSITIVE BREAST CANCER
     Route: 042
     Dates: start: 20070316, end: 200710
  8. DOXIL (UNITED STATES) [Suspect]
     Indication: PRODUCT USED FOR UNKNOWN INDICATION
     Route: 065
     Dates: start: 20050426
  9. DOXIL (UNITED STATES) [Suspect]
     Route: 065
  10. DOXIL (UNITED STATES) [Suspect]
     Route: 065
     Dates: start: 20050810, end: 20050810
  11. TAXOTERE [Concomitant]
     Route: 065
     Dates: start: 20030103, end: 20030417
  12. CARBOPLATIN [Concomitant]
     Route: 065
     Dates: start: 20030103, end: 20030317
  13. AREDIA [Concomitant]
     Route: 065
     Dates: start: 20050426
  14. HALICHONDRIN B [Concomitant]
     Route: 065
     Dates: start: 20061013, end: 20070212
  15. ABRAXANE [Concomitant]
     Dosage: TAKES EVERY 3 WEEKS; THEN OFF 1 WEEK
     Route: 065
     Dates: start: 20070316, end: 20071008
  16. LAPATINIB [Concomitant]
     Route: 065
     Dates: start: 20090120, end: 20090921
  17. LAPATINIB [Concomitant]
     Route: 048
     Dates: start: 201007
  18. NAVELBINE [Concomitant]
     Dosage: 3 WEEKS ON, 1 WEEK OFF
     Route: 065
     Dates: start: 20091102, end: 20100712
  19. ERIBULIN [Concomitant]
     Dosage: DAYS 1-8 EVERY 21 DAYS
     Route: 065
     Dates: start: 20110125, end: 20110418
  20. XGEVA [Concomitant]
     Route: 058
     Dates: start: 20110125, end: 20111024
  21. XGEVA [Concomitant]
     Route: 065
     Dates: start: 20120924
  22. GOSERELIN [Concomitant]
     Route: 065
     Dates: start: 20110607, end: 20111024
  23. BICALUTAMIDE [Concomitant]
     Route: 065
     Dates: start: 20111219

REACTIONS (18)
  - Klebsiella bacteraemia [Recovered/Resolved]
  - Pyrexia [Unknown]
  - Cholangitis [Unknown]
  - Metastases to liver [Unknown]
  - Metastases to bone [Unknown]
  - Toxicity to various agents [Unknown]
  - Pain in extremity [Unknown]
  - Metastases to lung [Unknown]
  - Metastasis [Unknown]
  - Metastases to breast [Unknown]
  - Proteinuria [Unknown]
  - Fatigue [Unknown]
  - Malaise [Unknown]
  - Decreased interest [Unknown]
  - Neurotoxicity [Unknown]
  - Palmar-plantar erythrodysaesthesia syndrome [Unknown]
  - Cholecystitis acute [Unknown]
  - Cholelithiasis [Unknown]
